FAERS Safety Report 5872035-3 (Version None)
Quarter: 2008Q3

REPORT INFORMATION
  Report Type: 
  Country: None (occurrence: None)
  Receive Date: 20080905
  Receipt Date: 20080818
  Transmission Date: 20090109
  Serious: No
  Sender: FDA-Public Use
  Company Number: US-BAYER-200832077NA

PATIENT
  Age: 49 Year
  Sex: Female

DRUGS (5)
  1. MAGNEVIST [Suspect]
     Indication: NUCLEAR MAGNETIC RESONANCE IMAGING BRAIN
     Route: 042
     Dates: start: 20080813, end: 20080813
  2. SUBOXONE [Concomitant]
  3. DEXTRO-LA [Concomitant]
  4. MICARDIS [Concomitant]
  5. DYNACIRC [Concomitant]

REACTIONS (2)
  - NAUSEA [None]
  - VOMITING [None]
